FAERS Safety Report 19360861 (Version 1)
Quarter: 2021Q2

REPORT INFORMATION
  Report Type: Report from Study
  Country: None (occurrence: US)
  Receive Date: 20210602
  Receipt Date: 20210602
  Transmission Date: 20210717
  Serious: No
  Sender: FDA-Public Use
  Company Number: US-MDD US OPERATIONS-MDD202011-002283

PATIENT
  Age: 72 Year
  Sex: Male

DRUGS (1)
  1. APOKYN [Suspect]
     Active Substance: APOMORPHINE HYDROCHLORIDE
     Indication: ON AND OFF PHENOMENON
     Dosage: NOT PROVIDED

REACTIONS (7)
  - Vomiting [Unknown]
  - Impaired quality of life [Unknown]
  - On and off phenomenon [Unknown]
  - Condition aggravated [Unknown]
  - Therapy non-responder [Unknown]
  - Constipation [Unknown]
  - Diarrhoea [Unknown]
